FAERS Safety Report 7641000-8 (Version None)
Quarter: 2011Q3

REPORT INFORMATION
  Report Type: 
  Country: None (occurrence: None)
  Receive Date: 20110721
  Receipt Date: 20110707
  Transmission Date: 20111222
  Serious: Yes (Other)
  Sender: FDA-Public Use
  Company Number: LTI2011A00161

PATIENT
  Age: 59 Year
  Sex: Male

DRUGS (12)
  1. ALDACTONE [Concomitant]
  2. TAHOR (ATORVASTATIN CALCIUIM) [Concomitant]
  3. KARDEGIC (ACETYLSALICYLIC LYSINE) [Concomitant]
  4. IRBESARTAN [Concomitant]
  5. DIFFU K (POTASSIUM CHLORIDE) [Concomitant]
  6. ZANIDIP (LERCANDIPINE HYDROCHLORIDE) [Concomitant]
  7. KERLONE [Concomitant]
  8. LASIX [Concomitant]
  9. DIAMICRON (GLICLAZIDE) [Concomitant]
  10. PIOGLITAZONE HYDROCHLORIDE/METFORMIN HYDROCHLORIDE [Suspect]
     Indication: TYPE 2 DIABETES MELLITUS
     Dosage: 2 TAB, (1 TAB., 2 IN 1 D), ORAL
     Route: 048
     Dates: start: 20101008, end: 20110501
  11. MEDIATENSYL (URAPIDIL) [Concomitant]
  12. OMEPRAZOLE [Concomitant]

REACTIONS (2)
  - URINARY BLADDER POLYP [None]
  - BLADDER TRANSITIONAL CELL CARCINOMA [None]
